FAERS Safety Report 4826803-7 (Version None)
Quarter: 2005Q4

REPORT INFORMATION
  Report Type: 
  Country: None (occurrence: None)
  Receive Date: 20051014
  Receipt Date: 20050618
  Transmission Date: 20060501
  Serious: No
  Sender: FDA-Public Use
  Company Number: 2005SP001545

PATIENT
  Age: 66 Year
  Sex: Female
  Weight: 59.8748 kg

DRUGS (6)
  1. LUNESTA [Suspect]
     Indication: INSOMNIA
     Dosage: 2 MG;HS;ORAL, 2 MG;HS;ORAL
     Route: 048
     Dates: start: 20050601, end: 20050601
  2. LUNESTA [Suspect]
     Indication: INSOMNIA
     Dosage: 2 MG;HS;ORAL, 2 MG;HS;ORAL
     Route: 048
     Dates: start: 20050615, end: 20050620
  3. TOPROL-XL [Concomitant]
  4. OXYBUTYNIN CHLORIDE [Concomitant]
  5. THEOPHYLLINE [Concomitant]
  6. ATACAND [Concomitant]

REACTIONS (2)
  - DRUG INEFFECTIVE [None]
  - INSOMNIA [None]
